FAERS Safety Report 15584183 (Version 2)
Quarter: 2019Q1

REPORT INFORMATION
  Report Type: Spontaneous
  Country: RO (occurrence: RO)
  Receive Date: 20181104
  Receipt Date: 20190121
  Transmission Date: 20190417
  Serious: Yes (Death, Other)
  Sender: FDA-Public Use
  Company Number: PHHY2018RO143607

PATIENT
  Age: 47 Year
  Sex: Male

DRUGS (2)
  1. CASPOFUNGIN ACETATE. [Suspect]
     Active Substance: CASPOFUNGIN ACETATE
     Indication: ANTIFUNGAL TREATMENT
     Dosage: 50 MG, QD
     Route: 042
  2. VALACICLOVIR [Concomitant]
     Active Substance: VALACYCLOVIR HYDROCHLORIDE
     Indication: ANTIVIRAL TREATMENT
     Dosage: 500 MG, BID
     Route: 048

REACTIONS (3)
  - Death [Fatal]
  - Drug ineffective [Fatal]
  - Infection [Fatal]

NARRATIVE: CASE EVENT DATE: 2018
